FAERS Safety Report 17159379 (Version 1)
Quarter: 2019Q4

REPORT INFORMATION
  Report Type: Spontaneous
  Country: SK (occurrence: SK)
  Receive Date: 20191216
  Receipt Date: 20191216
  Transmission Date: 20200122
  Serious: Yes (Other)
  Sender: FDA-Public Use
  Company Number: SK-GLAXOSMITHKLINE-SK2019EME223746

PATIENT

DRUGS (27)
  1. RISPERIDONE. [Suspect]
     Active Substance: RISPERIDONE
     Indication: PERSONALITY DISORDER
     Dosage: UNK, SMALL DOSE
  2. AGOMELATINE [Suspect]
     Active Substance: AGOMELATINE
     Indication: ANTIDEPRESSANT THERAPY
     Dosage: UNK
  3. VALPROATE [Suspect]
     Active Substance: VALPROIC ACID
     Indication: AFFECTIVE DISORDER
     Dosage: UNK
  4. DULOXETINE. [Suspect]
     Active Substance: DULOXETINE
     Indication: ANTIDEPRESSANT THERAPY
     Dosage: UNK
  5. LITHIUM. [Suspect]
     Active Substance: LITHIUM
     Indication: AFFECTIVE DISORDER
     Dosage: UNK
  6. TRAZODONE [Suspect]
     Active Substance: TRAZODONE HYDROCHLORIDE
     Indication: ANTIDEPRESSANT THERAPY
     Dosage: UNK
  7. QUETIAPINE. [Suspect]
     Active Substance: QUETIAPINE
     Indication: PSYCHOTHERAPY
     Dosage: UNK
  8. BROMAZEPAM [Suspect]
     Active Substance: BROMAZEPAM
     Indication: ANXIOLYTIC THERAPY
     Dosage: UNK
  9. BUSPIRONE HYDROCHLORIDE. [Suspect]
     Active Substance: BUSPIRONE HYDROCHLORIDE
     Indication: ANXIOLYTIC THERAPY
     Dosage: UNK
  10. VENLAFAXINE [Suspect]
     Active Substance: VENLAFAXINE HYDROCHLORIDE
     Indication: ANTIDEPRESSANT THERAPY
     Dosage: UNK
  11. ZIPRASIDONE. [Suspect]
     Active Substance: ZIPRASIDONE
     Indication: PSYCHOTHERAPY
     Dosage: UNK
  12. ARIPIPRAZOLE. [Suspect]
     Active Substance: ARIPIPRAZOLE
     Indication: PSYCHOTHERAPY
     Dosage: UNK
  13. TIAPRIDE [Suspect]
     Active Substance: TIAPRIDE
     Indication: PSYCHOTHERAPY
     Dosage: UNK
  14. ALPRAZOLAM. [Suspect]
     Active Substance: ALPRAZOLAM
     Indication: ANXIOLYTIC THERAPY
     Dosage: UNK
  15. FLUPENTIXOL [Suspect]
     Active Substance: FLUPENTIXOL
     Indication: PSYCHOTHERAPY
     Dosage: UNK
  16. LEVOMEPROMAZINE [Suspect]
     Active Substance: LEVOMEPROMAZINE
     Indication: PSYCHOTHERAPY
     Dosage: UNK
  17. BUPROPION. [Suspect]
     Active Substance: BUPROPION
     Indication: ANTIDEPRESSANT THERAPY
     Dosage: UNK
  18. MIRTAZAPINE. [Suspect]
     Active Substance: MIRTAZAPINE
     Indication: ANTIDEPRESSANT THERAPY
     Dosage: UNK
  19. SERTRALINE [Suspect]
     Active Substance: SERTRALINE HYDROCHLORIDE
     Indication: ANTIDEPRESSANT THERAPY
     Dosage: UNK
  20. MIANSERIN [Suspect]
     Active Substance: MIANSERIN
     Indication: ANTIDEPRESSANT THERAPY
     Dosage: UNK
  21. AMITRIPTYLINE [Suspect]
     Active Substance: AMITRIPTYLINE
     Indication: ANTIDEPRESSANT THERAPY
     Dosage: UNK
  22. CARBAMAZEPINE. [Suspect]
     Active Substance: CARBAMAZEPINE
     Indication: AFFECTIVE DISORDER
     Dosage: UNK
  23. CITALOPRAM [Suspect]
     Active Substance: CITALOPRAM HYDROBROMIDE
     Indication: ANTIDEPRESSANT THERAPY
     Dosage: UNK
  24. AMISULPRIDE [Suspect]
     Active Substance: AMISULPRIDE
     Indication: PSYCHOTHERAPY
     Dosage: UNK
  25. CHLORPROTHIXEN [Suspect]
     Active Substance: CHLORPROTHIXENE HYDROCHLORIDE
     Indication: PSYCHOTHERAPY
     Dosage: UNK
  26. CLONAZEPAM. [Suspect]
     Active Substance: CLONAZEPAM
     Indication: ANXIOLYTIC THERAPY
     Dosage: UNK
  27. FLUNITRAZEPAM [Suspect]
     Active Substance: FLUNITRAZEPAM
     Indication: ANXIOLYTIC THERAPY
     Dosage: UNK

REACTIONS (6)
  - Type 2 diabetes mellitus [Unknown]
  - Extrapyramidal disorder [Unknown]
  - Drug ineffective [Unknown]
  - Fatigue [Unknown]
  - Vertigo [Unknown]
  - Weight increased [Unknown]
